FAERS Safety Report 5414669-6 (Version None)
Quarter: 2007Q3

REPORT INFORMATION
  Report Type: 
  Country: None (occurrence: None)
  Receive Date: 20070813
  Receipt Date: 20070711
  Transmission Date: 20080115
  Serious: Yes (Other)
  Sender: FDA-Public Use
  Company Number: 2007RR-08674

PATIENT
  Age: 19 Year
  Sex: Female

DRUGS (1)
  1. MINOCYCLINE HYDROCHLORIDE [Suspect]
     Indication: ACNE PUSTULAR
     Dosage: 100 MG, BID

REACTIONS (5)
  - ARTHRITIS [None]
  - PANNICULITIS [None]
  - POLYARTERITIS NODOSA [None]
  - THROMBOSIS [None]
  - VASCULITIS NECROTISING [None]
